FAERS Safety Report 13581870 (Version 1)
Quarter: 2017Q2

REPORT INFORMATION
  Report Type: Spontaneous
  Country: US (occurrence: US)
  Receive Date: 20170525
  Receipt Date: 20170525
  Transmission Date: 20170830
  Serious: Yes (Hospitalization)
  Sender: FDA-Public Use
  Company Number: US-B.I. PHARMACEUTICALS,INC./RIDGEFIELD-2017-BI-028300

PATIENT
  Age: 61 Year
  Sex: Male

DRUGS (4)
  1. METFORMIN [Concomitant]
     Active Substance: METFORMIN HYDROCHLORIDE
     Indication: DIABETES MELLITUS
     Dosage: 4 TIMES A DAY;  FORM STRENGTH: 500MG; FORMULATION: TABLET
     Route: 048
  2. LISINOPRIL. [Concomitant]
     Active Substance: LISINOPRIL
     Indication: PROPHYLAXIS
     Dosage: DAILY;  FORM STRENGTH: 5MG; FORMULATION: TABLET
     Route: 048
  3. GABAPENTIN. [Concomitant]
     Active Substance: GABAPENTIN
     Indication: NEUROPATHY PERIPHERAL
     Dosage: 3 TIMES A DAY;  FORM STRENGTH: 600MG; FORMULATION: TABLET
     Route: 048
  4. GLYXAMBI [Suspect]
     Active Substance: EMPAGLIFLOZIN\LINAGLIPTIN
     Indication: DIABETES MELLITUS
     Dosage: DAILY;  FORM STRENGTH, UNIT DOSE, DAILY DOSE: 25 MG/ 5 MG; FORMULATION: TABLET? ADMINISTRATION CORRE
     Route: 048

REACTIONS (2)
  - Myocardial infarction [Recovered/Resolved]
  - Stent malfunction [Recovered/Resolved]

NARRATIVE: CASE EVENT DATE: 201603
